FAERS Safety Report 5305630-0 (Version None)
Quarter: 2007Q2

REPORT INFORMATION
  Report Type: 
  Country: None (occurrence: None)
  Receive Date: 20070419
  Receipt Date: 20070419
  Transmission Date: 20071010
  Serious: Yes (Hospitalization)
  Sender: FDA-Public Use
  Company Number: None

PATIENT
  Sex: Female
  Weight: 136 kg

DRUGS (11)
  1. CARBOPLATIN [Suspect]
     Dosage: 332 MG
  2. TAXOL [Suspect]
     Dosage: 349 MG
  3. ATENOLOL [Concomitant]
  4. AZTREONAM [Concomitant]
  5. INSULIN [Concomitant]
  6. KAYEXALATE [Concomitant]
  7. LEVOTHYROXINE SODIUM [Concomitant]
  8. PANTROPAZOLE [Concomitant]
  9. SODIUM BICARBONATE [Concomitant]
  10. SPIRONOLACTONE [Concomitant]
  11. VANCOMYCIN [Concomitant]

REACTIONS (26)
  - ABDOMINAL PAIN [None]
  - ACIDOSIS [None]
  - ANXIETY [None]
  - ASCITES [None]
  - BLOOD CREATININE INCREASED [None]
  - BLOOD POTASSIUM INCREASED [None]
  - DECREASED APPETITE [None]
  - DEPRESSED LEVEL OF CONSCIOUSNESS [None]
  - DYSPNOEA EXERTIONAL [None]
  - FATIGUE [None]
  - INCISION SITE COMPLICATION [None]
  - INCISION SITE ERYTHEMA [None]
  - LOSS OF CONSCIOUSNESS [None]
  - METABOLIC ACIDOSIS [None]
  - NAUSEA [None]
  - OEDEMA PERIPHERAL [None]
  - PALLOR [None]
  - PALMAR ERYTHEMA [None]
  - PARACENTESIS [None]
  - PITTING OEDEMA [None]
  - PURULENT DISCHARGE [None]
  - REFUSAL OF TREATMENT BY RELATIVE [None]
  - RESPIRATORY ACIDOSIS [None]
  - SPIDER NAEVUS [None]
  - TACHYPNOEA [None]
  - TENDERNESS [None]
